FAERS Safety Report 5283563-6 (Version None)
Quarter: 2007Q1

REPORT INFORMATION
  Report Type: 
  Country: None (occurrence: None)
  Receive Date: 20070329
  Receipt Date: 20070329
  Transmission Date: 20070707
  Serious: Yes (Other)
  Sender: FDA-Public Use
  Company Number: None

PATIENT
  Age: 52 Year
  Sex: Female
  Weight: 88.4514 kg

DRUGS (1)
  1. ISOVUE-370 [Suspect]
     Indication: COMPUTERISED TOMOGRAM
     Dosage: 80 ML ONCE IV
     Route: 042
     Dates: start: 20070313, end: 20070313

REACTIONS (3)
  - EYE PRURITUS [None]
  - RASH PRURITIC [None]
  - VISION BLURRED [None]
